FAERS Safety Report 9369478 (Version 1)
Quarter: 2013Q2

REPORT INFORMATION
  Report Type: Spontaneous
  Country: GB (occurrence: None)
  Receive Date: 20130621
  Receipt Date: 20130621
  Transmission Date: 20140414
  Serious: Yes (Other)
  Sender: FDA-Public Use
  Company Number: BR-025318

PATIENT
  Age: 51 Year
  Sex: Male

DRUGS (2)
  1. MELPHALAN [Suspect]
     Indication: VASCULITIS
  2. MABTHERA (RITUXIMAB) (UNKNOWN) [Concomitant]

REACTIONS (2)
  - Respiratory tract infection [None]
  - Neutropenia [None]
